FAERS Safety Report 14778097 (Version 1)
Quarter: 2018Q2

REPORT INFORMATION
  Report Type: Report from Study
  Country: US (occurrence: US)
  Receive Date: 20180419
  Receipt Date: 20180419
  Transmission Date: 20180711
  Serious: No
  Sender: FDA-Public Use
  Company Number: US-ROCHE-2110338

PATIENT
  Sex: Female

DRUGS (1)
  1. OCREVUS [Suspect]
     Active Substance: OCRELIZUMAB
     Indication: MULTIPLE SCLEROSIS RELAPSE
     Dosage: 300 MG ON DAY 1 AND DAY 15 FOLLOWED BY 600 MG, EVERY 6 MONTHS
     Route: 065
     Dates: start: 20180415

REACTIONS (1)
  - Cystitis [Unknown]
